FAERS Safety Report 8358251-X (Version None)
Quarter: 2012Q2

REPORT INFORMATION
  Report Type: 
  Country: None (occurrence: None)
  Receive Date: 20120514
  Receipt Date: 20120316
  Transmission Date: 20120825
  Serious: Yes (Hospitalization)
  Sender: FDA-Public Use
  Company Number: DE-GLAXOSMITHKLINE-D0075586A

PATIENT
  Age: 42 Year
  Sex: Male

DRUGS (7)
  1. PHENYTOIN [Suspect]
     Dosage: 500MG PER DAY
     Route: 065
  2. PREGABALIN [Suspect]
     Dosage: 300MG PER DAY
     Route: 065
  3. POTIGA [Suspect]
     Dosage: 450MG PER DAY
     Route: 048
  4. CLOBAZAM [Suspect]
     Dosage: 45MG PER DAY
     Route: 065
  5. LEVETIRACETAM [Suspect]
     Dosage: 2000MG PER DAY
     Route: 065
  6. VALPROATE SODIUM [Suspect]
     Dosage: 1250MG PER DAY
     Route: 065
  7. LAIF [Suspect]
     Dosage: 7200MG PER DAY
     Route: 065

REACTIONS (4)
  - CONVULSION [None]
  - HEADACHE [None]
  - DRUG INEFFECTIVE [None]
  - AGGRESSION [None]
